FAERS Safety Report 5669462-6 (Version None)
Quarter: 2008Q1

REPORT INFORMATION
  Report Type: 
  Country: None (occurrence: None)
  Receive Date: 20080317
  Receipt Date: 20080311
  Transmission Date: 20080703
  Serious: Yes (Other)
  Sender: FDA-Public Use
  Company Number: B0512407A

PATIENT
  Age: 64 Year
  Sex: Female

DRUGS (1)
  1. NARAMIG [Suspect]
     Indication: MIGRAINE
     Route: 065

REACTIONS (3)
  - DEPENDENCE [None]
  - DRUG ABUSE [None]
  - HEADACHE [None]
